FAERS Safety Report 10138015 (Version 2)
Quarter: 2015Q1

REPORT INFORMATION
  Report Type: Other
  Country: US (occurrence: US)
  Receive Date: 20140429
  Receipt Date: 20150225
  Transmission Date: 20150720
  Serious: Yes (Hospitalization, Other)
  Sender: FDA-Public Use
  Company Number: US-GSKPPD-2014GSK041694

PATIENT
  Age: 85 Year
  Sex: Female

DRUGS (9)
  1. METOPROLOL [Concomitant]
     Active Substance: METOPROLOL
     Route: 048
  2. METOPROLOL [Concomitant]
     Active Substance: METOPROLOL
     Route: 048
  3. HYDROCHLOROTHIAZIDE. [Concomitant]
     Active Substance: HYDROCHLOROTHIAZIDE
     Route: 048
  4. PLAVIX [Concomitant]
     Active Substance: CLOPIDOGREL BISULFATE
  5. AVANDIA [Suspect]
     Active Substance: ROSIGLITAZONE MALEATE
     Indication: DIABETES MELLITUS
     Dosage: DATES OF AVANDIA USE COULD NOT BE CONFIRMED IN RECORDS REVIEWED.
     Route: 048
  6. DIOVAN [Concomitant]
     Active Substance: VALSARTAN
     Route: 048
  7. NITROGLYCERINE [Concomitant]
     Active Substance: NITROGLYCERIN
     Route: 060
  8. PLAVIX [Concomitant]
     Active Substance: CLOPIDOGREL BISULFATE
     Route: 048
  9. NITROGLYCERINE [Concomitant]
     Active Substance: NITROGLYCERIN
     Route: 048

REACTIONS (2)
  - Myocardial infarction [Unknown]
  - Chest pain [Recovered/Resolved]

NARRATIVE: CASE EVENT DATE: 20101002
